FAERS Safety Report 15654289 (Version 2)
Quarter: 2018Q4

REPORT INFORMATION
  Report Type: Spontaneous
  Country: US (occurrence: US)
  Receive Date: 20181125
  Receipt Date: 20181126
  Transmission Date: 20190205
  Serious: Yes (Hospitalization, Other)
  Sender: FDA-Public Use
  Company Number: US-JNJFOC-20181118078

PATIENT
  Weight: 1.7 kg

DRUGS (2)
  1. ACETAMINOPHEN. [Suspect]
     Active Substance: ACETAMINOPHEN
     Indication: TOOTHACHE
     Dosage: PATIENT^S MOTHER TAKEN A FULL BOTTLE (BOTTLE SIZE UNSPECIFIED) OF ACETAMINOPHEN
     Route: 064
  2. ACETAMINOPHEN. [Suspect]
     Active Substance: ACETAMINOPHEN
     Route: 064

REACTIONS (6)
  - Premature baby [Unknown]
  - Hepatotoxicity [Recovering/Resolving]
  - Drug level increased [Recovering/Resolving]
  - Coagulopathy [Recovering/Resolving]
  - Platelet count decreased [Recovering/Resolving]
  - Foetal exposure during pregnancy [Unknown]
